FAERS Safety Report 18580465 (Version 2)
Quarter: 2021Q3

REPORT INFORMATION
  Report Type: Report from Study
  Country: AU (occurrence: AU)
  Receive Date: 20201204
  Receipt Date: 20210811
  Transmission Date: 20211014
  Serious: No
  Sender: FDA-Public Use
  Company Number: AU-JNJFOC-20201123567

PATIENT
  Age: 50 Year
  Sex: Female

DRUGS (3)
  1. STELARA [Suspect]
     Active Substance: USTEKINUMAB
     Route: 042
  2. STELARA [Suspect]
     Active Substance: USTEKINUMAB
     Route: 058
  3. STELARA [Suspect]
     Active Substance: USTEKINUMAB
     Indication: CROHN^S DISEASE
     Route: 042

REACTIONS (14)
  - Arthralgia [Unknown]
  - Nausea [Unknown]
  - Off label use [Unknown]
  - Bone pain [Not Recovered/Not Resolved]
  - Palpitations [Unknown]
  - Oral pain [Unknown]
  - Chest pain [Unknown]
  - Muscle spasms [Unknown]
  - Injection site pain [Unknown]
  - Dyspnoea [Unknown]
  - Heart rate abnormal [Unknown]
  - Insomnia [Unknown]
  - Hepatomegaly [Unknown]
  - Product use issue [Unknown]

NARRATIVE: CASE EVENT DATE: 20201023
